FAERS Safety Report 22178829 (Version 5)
Quarter: 2024Q3

REPORT INFORMATION
  Report Type: Spontaneous
  Country: BG (occurrence: BG)
  Receive Date: 20230406
  Receipt Date: 20240807
  Transmission Date: 20241017
  Serious: Yes (Other)
  Sender: TOLMAR
  Company Number: BG-TOLMAR, INC.-23BG039832

PATIENT
  Age: 65 Year
  Sex: Male

DRUGS (7)
  1. ELIGARD [Suspect]
     Active Substance: LEUPROLIDE ACETATE
     Indication: Prostate cancer
     Dosage: 45 MILLIGRAM, Q 6 MONTH
     Route: 058
     Dates: start: 201809
  2. ELIGARD [Suspect]
     Active Substance: LEUPROLIDE ACETATE
     Dosage: 45 MILLIGRAM, Q 6 MONTH
     Route: 058
     Dates: start: 202109
  3. ZOLEDRONIC ACID [Suspect]
     Active Substance: ZOLEDRONIC ACID
     Indication: Prostate cancer
     Dosage: 4 MILLIGRAM, EVERY 28 DAYS
     Route: 042
  4. BICALUTAMIDE [Suspect]
     Active Substance: BICALUTAMIDE
     Indication: Prostate cancer
     Dosage: 50 MG X 1 TB./DAY, FOR 18 MONTHS
     Route: 048
     Dates: start: 202001
  5. DENOSUMAB [Concomitant]
     Active Substance: DENOSUMAB
     Indication: Product used for unknown indication
     Dosage: 120 MILLIGRAM, Q 1 MONTH
     Route: 058
     Dates: start: 202109
  6. DENOSUMAB [Concomitant]
     Active Substance: DENOSUMAB
     Dosage: 120 MILLIGRAM, EVERY 30 DAYS
     Route: 058
  7. XTANDI [Concomitant]
     Active Substance: ENZALUTAMIDE
     Indication: Product used for unknown indication
     Dosage: 160 MILLIGRAM, QD
     Dates: start: 202109

REACTIONS (18)
  - Diabetes mellitus inadequate control [Unknown]
  - Cerebral atrophy [Unknown]
  - Osteonecrosis of jaw [Unknown]
  - Prostate cancer [Unknown]
  - Cardiac failure acute [Recovering/Resolving]
  - Cancer pain [Unknown]
  - Prostatic specific antigen increased [Unknown]
  - Metastases to bone [Unknown]
  - Musculoskeletal stiffness [Unknown]
  - Blood pressure fluctuation [Recovering/Resolving]
  - Dermatitis [Unknown]
  - Polydipsia [Unknown]
  - Headache [Unknown]
  - Muscular weakness [Unknown]
  - Asthenia [Unknown]
  - Polyuria [Unknown]
  - Bone pain [Unknown]
  - Insomnia [Unknown]

NARRATIVE: CASE EVENT DATE: 20181201
